APPROVED DRUG PRODUCT: ALLOPURINOL
Active Ingredient: ALLOPURINOL
Strength: 100MG
Dosage Form/Route: TABLET;ORAL
Application: A077353 | Product #001 | TE Code: AB
Applicant: CHARTWELL LIFE MOLECULES LLC
Approved: Sep 8, 2005 | RLD: No | RS: No | Type: RX